FAERS Safety Report 5977903-X (Version None)
Quarter: 2008Q4

REPORT INFORMATION
  Report Type: 
  Country: None (occurrence: None)
  Receive Date: 20081203
  Receipt Date: 20081128
  Transmission Date: 20090506
  Serious: Yes (Death)
  Sender: FDA-Public Use
  Company Number: US-GILEAD-2008-0019259

PATIENT
  Sex: Female

DRUGS (11)
  1. LETAIRIS [Suspect]
     Indication: PULMONARY ARTERIAL HYPERTENSION
     Route: 048
     Dates: start: 20080814
  2. MULTI-VITAMIN [Concomitant]
     Route: 048
  3. FISH OIL [Concomitant]
     Route: 048
  4. PLAQUENIL [Concomitant]
     Route: 048
  5. PLAQUENIL [Concomitant]
     Route: 048
  6. COUMADIN [Concomitant]
     Route: 048
  7. OXYGEN [Concomitant]
     Route: 055
  8. CALCIUM [Concomitant]
     Route: 048
  9. NEURONTIN [Concomitant]
     Route: 048
  10. FOSAMAX [Concomitant]
     Route: 048
  11. VITAMIN D [Concomitant]
     Route: 048

REACTIONS (1)
  - DEATH [None]
